FAERS Safety Report 5049414-X (Version None)
Quarter: 2006Q3

REPORT INFORMATION
  Report Type: 
  Country: None (occurrence: None)
  Receive Date: 20060711
  Receipt Date: 20060711
  Transmission Date: 20061208
  Serious: Yes (Other)
  Sender: FDA-Public Use
  Company Number: None

PATIENT
  Age: 85 Year
  Sex: Female
  Weight: 62.5964 kg

DRUGS (1)
  1. AMBIEN CR [Suspect]
     Indication: SLEEP DISORDER
     Dates: start: 20060701, end: 20060704

REACTIONS (5)
  - AMNESIA [None]
  - CRYING [None]
  - HAEMORRHAGE [None]
  - HEAD INJURY [None]
  - LACERATION [None]
